FAERS Safety Report 5927306-9 (Version None)
Quarter: 2008Q4

REPORT INFORMATION
  Report Type: 
  Country: None (occurrence: None)
  Receive Date: 20081017
  Receipt Date: 20080910
  Transmission Date: 20090506
  Serious: Yes (Hospitalization)
  Sender: FDA-Public Use
  Company Number: 0234

PATIENT
  Age: 49 Year
  Sex: Male

DRUGS (3)
  1. INDOMETHACIN [Suspect]
     Indication: PAIN
     Dosage: NI, RC
     Route: 054
     Dates: start: 20080724, end: 20080731
  2. ATACAND HCT [Suspect]
     Indication: HYPERTENSION
     Dosage: NI, PO
     Route: 048
  3. MANIDIPINE HYDROCHLORIDE [Suspect]

REACTIONS (1)
  - RENAL FAILURE ACUTE [None]
